FAERS Safety Report 25202581 (Version 1)
Quarter: 2025Q2

REPORT INFORMATION
  Report Type: Spontaneous
  Country: US (occurrence: None)
  Receive Date: 20250415
  Receipt Date: 20250415
  Transmission Date: 20250717
  Serious: Yes (Hospitalization)
  Sender: FDA-CTU
  Company Number: None

PATIENT
  Age: 44 Year
  Sex: Female

DRUGS (1)
  1. TERIFLUNOMIDE [Suspect]
     Active Substance: TERIFLUNOMIDE
     Indication: Multiple sclerosis
     Dosage: FREQUENCY : DAILY;?

REACTIONS (13)
  - Dizziness [None]
  - Dyspnoea [None]
  - Fatigue [None]
  - Pain in extremity [None]
  - Multiple sclerosis [None]
  - Peripheral swelling [None]
  - Joint swelling [None]
  - Joint swelling [None]
  - Peripheral swelling [None]
  - Platelet count decreased [None]
  - Lymphocyte count decreased [None]
  - White blood cell count decreased [None]
  - Liver function test increased [None]
